FAERS Safety Report 7864688-5 (Version None)
Quarter: 2011Q4

REPORT INFORMATION
  Report Type: 
  Country: None (occurrence: None)
  Receive Date: 20111028
  Receipt Date: 20111028
  Transmission Date: 20120403
  Serious: Yes (Life-Threatening, Hospitalization)
  Sender: FDA-Public Use
  Company Number: NZ-B.I. PHARMACEUTICALS,INC./RIDGEFIELD-2011-AU-01983AU

PATIENT
  Age: 9 Decade
  Sex: Male

DRUGS (1)
  1. PRADAXA [Suspect]
     Dosage: THE PATIENT WAS ON 150 MG, 110 MG AND 75 MG DAILY

REACTIONS (3)
  - GLOMERULAR FILTRATION RATE DECREASED [None]
  - CONTUSION [None]
  - EPISTAXIS [None]
